FAERS Safety Report 7948261-6 (Version None)
Quarter: 2011Q4

REPORT INFORMATION
  Report Type: 
  Country: None (occurrence: None)
  Receive Date: 20111130
  Receipt Date: 20111122
  Transmission Date: 20120403
  Serious: No
  Sender: FDA-Public Use
  Company Number: US-PFIZER INC-2011290975

PATIENT
  Sex: Female
  Weight: 110 kg

DRUGS (3)
  1. EFFEXOR [Suspect]
  2. CELEBREX [Suspect]
  3. LYRICA [Suspect]

REACTIONS (1)
  - DRUG HYPERSENSITIVITY [None]
